FAERS Safety Report 4402352-5 (Version None)
Quarter: 2004Q3

REPORT INFORMATION
  Report Type: 
  Country: None (occurrence: None)
  Receive Date: 20040715
  Receipt Date: 20040625
  Transmission Date: 20050211
  Serious: Yes (Death)
  Sender: FDA-Public Use
  Company Number: 2004-DE-03517GD

PATIENT

DRUGS (2)
  1. NEVIRAPINE (NEVIRAPINE) (NR) (NEVIRAPINE) [Suspect]
     Indication: HIV INFECTION
  2. ANTIRETROVIRALS (ANTIRETROVIRALS FOR SYSTEMIC USE) (NR) [Suspect]
     Indication: HIV INFECTION

REACTIONS (1)
  - DEATH [None]
